FAERS Safety Report 7640667-8 (Version None)
Quarter: 2011Q3

REPORT INFORMATION
  Report Type: 
  Country: None (occurrence: None)
  Receive Date: 20110728
  Receipt Date: 20110719
  Transmission Date: 20111222
  Serious: Yes (Other)
  Sender: FDA-Public Use
  Company Number: CA-TEVA-291913USA

PATIENT
  Age: 42 Year
  Sex: Female

DRUGS (3)
  1. TRIAMTERENE AND HYDROCHLOROTHIAZIDE [Suspect]
     Dosage: 1 TABLET;
     Dates: start: 20100801, end: 20110701
  2. TERBINAFINE HCL [Suspect]
     Indication: FUNGAL INFECTION
     Dosage: 250 MILLIGRAM;
     Dates: start: 20110717, end: 20110717
  3. THIORIDAZINE HCL [Concomitant]
     Indication: VERTIGO
     Dosage: 16 MILLIGRAM;

REACTIONS (4)
  - TINNITUS [None]
  - FEELING HOT [None]
  - HEARING IMPAIRED [None]
  - DEAFNESS [None]
